APPROVED DRUG PRODUCT: PANCURONIUM BROMIDE
Active Ingredient: PANCURONIUM BROMIDE
Strength: 2MG/ML
Dosage Form/Route: INJECTABLE;INJECTION
Application: A072760 | Product #001
Applicant: DR REDDYS LABORATORIES LTD
Approved: Jul 31, 1990 | RLD: No | RS: Yes | Type: RX